FAERS Safety Report 16294880 (Version 1)
Quarter: 2019Q2

REPORT INFORMATION
  Report Type: Spontaneous
  Country: GB (occurrence: GB)
  Receive Date: 20190509
  Receipt Date: 20190509
  Transmission Date: 20190711
  Serious: Yes (Other)
  Sender: FDA-Public Use
  Company Number: GB-TEVA-2019-GB-1045838

PATIENT
  Age: 65 Year
  Sex: Female
  Weight: 55 kg

DRUGS (7)
  1. SIMVASTATIN. [Concomitant]
     Active Substance: SIMVASTATIN
     Dosage: AT NIGHT
     Dates: start: 20150304
  2. NEFOPAM [Concomitant]
     Active Substance: NEFOPAM
     Dates: start: 20190304, end: 20190319
  3. GABAPENTIN. [Suspect]
     Active Substance: GABAPENTIN
     Indication: SCIATICA
     Dates: start: 20190306
  4. COLECALCIFEROL [Concomitant]
     Active Substance: CHOLECALCIFEROL
     Dosage: ONE A MONTH APRIL - SEPTEMBER , THEN 2 PER MONTH...
     Dates: start: 20160516
  5. PULMICORT TURBUHALER [Concomitant]
     Active Substance: BUDESONIDE
     Dates: start: 20150304
  6. BRICANYL [Concomitant]
     Active Substance: TERBUTALINE SULFATE
     Dates: start: 20150304
  7. FLIXONASE [Concomitant]
     Active Substance: FLUTICASONE PROPIONATE
     Dosage: PUFFS
     Dates: start: 20150304

REACTIONS (3)
  - Urinary incontinence [Unknown]
  - Contusion [Recovered/Resolved]
  - Skin discolouration [Recovered/Resolved]
